FAERS Safety Report 9295290 (Version 1)
Quarter: 2013Q2

REPORT INFORMATION
  Report Type: Spontaneous
  Country: CL (occurrence: CL)
  Receive Date: 20130517
  Receipt Date: 20130517
  Transmission Date: 20140414
  Serious: Yes (Other)
  Sender: FDA-Public Use
  Company Number: CL-NOVOPROD-377781

PATIENT
  Age: 33 Year
  Sex: Female
  Weight: 57 kg

DRUGS (1)
  1. LEVEMIR FLEXPEN [Suspect]
     Indication: GESTATIONAL DIABETES
     Dosage: 6 IU, QD
     Route: 058

REACTIONS (2)
  - Deep vein thrombosis [Not Recovered/Not Resolved]
  - Exposure during pregnancy [Unknown]
